FAERS Safety Report 17307317 (Version 1)
Quarter: 2020Q1

REPORT INFORMATION
  Report Type: Spontaneous
  Country: US (occurrence: US)
  Receive Date: 20200123
  Receipt Date: 20200123
  Transmission Date: 20200409
  Serious: No
  Sender: FDA-Public Use
  Company Number: US-TEVA-2020-US-1171235

PATIENT
  Sex: Female

DRUGS (1)
  1. BUPROPION EXTENDED RELEASE XL [Suspect]
     Active Substance: BUPROPION
     Dosage: 300 MILLIGRAM DAILY; 2 150 MG TABLETS AT NIGHT
     Route: 065

REACTIONS (4)
  - Nervousness [Unknown]
  - Product substitution issue [Unknown]
  - Anxiety [Unknown]
  - Adverse drug reaction [Unknown]
